FAERS Safety Report 5321252-X (Version None)
Quarter: 2007Q1

REPORT INFORMATION
  Report Type: 
  Country: None (occurrence: None)
  Receive Date: 20070215
  Receipt Date: 20061004
  Transmission Date: 20070707
  Serious: No
  Sender: FDA-Public Use
  Company Number: 200615559BWH

PATIENT
  Sex: Female

DRUGS (2)
  1. NEXAVAR [Suspect]
     Indication: DRUG USE FOR UNKNOWN INDICATION
     Dosage: ORAL
     Route: 048
  2. BLOOD PRESSURE MEDICATION NOS [Concomitant]

REACTIONS (3)
  - DIARRHOEA [None]
  - DYSPNOEA [None]
  - URTICARIA [None]
